FAERS Safety Report 5761815-0 (Version None)
Quarter: 2008Q2

REPORT INFORMATION
  Report Type: 
  Country: None (occurrence: None)
  Receive Date: 20080602
  Receipt Date: 20080528
  Transmission Date: 20081010
  Serious: Yes (Death, Other)
  Sender: FDA-Public Use
  Company Number: 163-20785-08041558

PATIENT
  Age: 78 Year
  Sex: Female

DRUGS (1)
  1. THALOMID [Suspect]
     Indication: MULTIPLE MYELOMA
     Dosage: 100 MG, 1 IN 1 D, ORAL
     Route: 048
     Dates: start: 20071101, end: 20080201

REACTIONS (3)
  - DIVERTICULAR PERFORATION [None]
  - DIVERTICULITIS [None]
  - PERITONITIS [None]
